FAERS Safety Report 16788841 (Version 3)
Quarter: 2022Q4

REPORT INFORMATION
  Report Type: Spontaneous
  Country: IT (occurrence: IT)
  Receive Date: 20190910
  Receipt Date: 20221230
  Transmission Date: 20230113
  Serious: Yes (Other)
  Sender: FDA-Public Use
  Company Number: IT-AUROBINDO-AUR-APL-2019-059331

PATIENT
  Age: 12 Month
  Sex: Male

DRUGS (6)
  1. MELPHALAN [Suspect]
     Active Substance: MELPHALAN
     Indication: Retinoblastoma
     Dosage: 5 MILLIGRAM,THRICE A WEEK
     Route: 013
  2. MELPHALAN [Suspect]
     Active Substance: MELPHALAN
     Dosage: 30 MICROGRAM, EVERY WEEK
     Route: 031
  3. CARBOPLATIN [Suspect]
     Active Substance: CARBOPLATIN
     Indication: Retinoblastoma
     Dosage: 30 MILLIGRAM, THRICE IN A WEEK
     Route: 013
  4. CARBOPLATIN [Suspect]
     Active Substance: CARBOPLATIN
     Dosage: 1 DOSAGE FORM, EVERY WEEK (1 INJECTION 1 WEEK AFTER IA, INTRAVITREAL)
  5. TOPOTECAN HYDROCHLORIDE [Suspect]
     Active Substance: TOPOTECAN HYDROCHLORIDE
     Indication: Retinoblastoma
     Dosage: 1 WEEK,1 INJECTION 1 WEEK AFTER IA
     Route: 031
  6. TOPOTECAN HYDROCHLORIDE [Suspect]
     Active Substance: TOPOTECAN HYDROCHLORIDE
     Dosage: 0.3-2 MG, THRICE IN A WEEKUNK
     Route: 013

REACTIONS (3)
  - Retinal degeneration [Unknown]
  - Product use in unapproved indication [Unknown]
  - Off label use [Unknown]
